FAERS Safety Report 9406500 (Version 1)
Quarter: 2013Q3

REPORT INFORMATION
  Report Type: Spontaneous
  Country: US (occurrence: US)
  Receive Date: 20130718
  Receipt Date: 20130718
  Transmission Date: 20140515
  Serious: Yes (Death, Other)
  Sender: FDA-Public Use
  Company Number: US-JNJFOC-20130709681

PATIENT
  Age: 2 Year
  Sex: Female

DRUGS (1)
  1. BENADRYL [Suspect]
     Indication: HOMICIDE
     Dosage: TWO OR THREE SYRINGES
     Route: 050
     Dates: start: 201306

REACTIONS (2)
  - Overdose [Fatal]
  - Victim of homicide [Fatal]
